FAERS Safety Report 8762393 (Version 1)
Quarter: 2012Q4

REPORT INFORMATION
  Report Type: 
  Country: US (occurrence: US)
  Receive Date: 20120829
  Receipt Date: 20120829
  Transmission Date: 20130627
  Serious: No
  Sender: FDA-Public Use
  Company Number: US-PFIZER INC-2012210905

PATIENT
  Age: 33 Year
  Sex: Female
  Weight: 61.22 kg

DRUGS (4)
  1. GEODON [Suspect]
     Indication: BIPOLAR DISORDER
     Dosage: 80 mg, 2x/day
     Route: 048
     Dates: start: 200910
  2. GEODON [Suspect]
     Dosage: 60 mg, 2x/day
     Route: 048
  3. GEODON [Suspect]
     Dosage: UNK
     Route: 048
     Dates: end: 2011
  4. LAMICTAL [Concomitant]
     Dosage: UNK

REACTIONS (9)
  - Neurological symptom [Unknown]
  - Paraesthesia [Unknown]
  - Burning sensation [Unknown]
  - Alopecia [Unknown]
  - Hair texture abnormal [Unknown]
  - Muscle rigidity [Unknown]
  - Fatigue [Unknown]
  - Lethargy [Unknown]
  - Bedridden [Unknown]
